FAERS Safety Report 5502308-5 (Version None)
Quarter: 2007Q4

REPORT INFORMATION
  Report Type: 
  Country: None (occurrence: None)
  Receive Date: 20071030
  Receipt Date: 20071015
  Transmission Date: 20080405
  Serious: Yes (Hospitalization)
  Sender: FDA-Public Use
  Company Number: FR-GENENTECH-248234

PATIENT
  Age: 55 Year
  Sex: Female

DRUGS (1)
  1. HERCEPTIN [Suspect]
     Indication: BREAST CANCER
     Route: 042
     Dates: start: 20070505

REACTIONS (3)
  - EJECTION FRACTION DECREASED [None]
  - ELECTROCARDIOGRAM ABNORMAL [None]
  - HYPERTENSION [None]
